FAERS Safety Report 8025860-7 (Version None)
Quarter: 2012Q1

REPORT INFORMATION
  Report Type: 
  Country: None (occurrence: None)
  Receive Date: 20120105
  Receipt Date: 20110404
  Transmission Date: 20120608
  Serious: No
  Sender: FDA-Public Use
  Company Number: US-ABBOTT-11P-163-0716827-00

PATIENT
  Sex: Female
  Weight: 59.02 kg

DRUGS (4)
  1. SYNTHROID [Suspect]
     Indication: HYPOTHYROIDISM
     Dates: start: 20010301, end: 20100501
  2. SYNTHROID [Suspect]
     Dates: start: 20101201
  3. THYROID TAB [Suspect]
     Indication: HYPOTHYROIDISM
     Dates: start: 20100501, end: 20101201
  4. VITAMIN D [Concomitant]
     Indication: PRODUCT USED FOR UNKNOWN INDICATION

REACTIONS (2)
  - THYROID FUNCTION TEST ABNORMAL [None]
  - ALOPECIA [None]
